FAERS Safety Report 12069286 (Version 1)
Quarter: 2016Q1

REPORT INFORMATION
  Report Type: Spontaneous
  Country: US (occurrence: None)
  Receive Date: 20160211
  Receipt Date: 20160211
  Transmission Date: 20160526
  Serious: Yes (Hospitalization)
  Sender: FDA-Public Use
  Company Number: None

PATIENT
  Age: 74 Year
  Sex: Male
  Weight: 74.84 kg

DRUGS (10)
  1. IRON [Concomitant]
     Active Substance: IRON
  2. ATENOLOL. [Concomitant]
     Active Substance: ATENOLOL
  3. ASA [Concomitant]
     Active Substance: ASPIRIN
  4. PRADAXA [Concomitant]
     Active Substance: DABIGATRAN ETEXILATE MESYLATE
  5. PREDNISONE. [Concomitant]
     Active Substance: PREDNISONE
  6. TICAGRELOR [Suspect]
     Active Substance: TICAGRELOR
     Indication: SURGERY
     Route: 048
     Dates: start: 20151021, end: 20160105
  7. SERTRALINE HCL [Concomitant]
     Active Substance: SERTRALINE HYDROCHLORIDE
  8. VISTARIL [Concomitant]
     Active Substance: HYDROXYZINE PAMOATE
  9. RANITIDINE [Concomitant]
     Active Substance: RANITIDINE\RANITIDINE HYDROCHLORIDE
  10. VITAMIN D [Concomitant]
     Active Substance: CHOLECALCIFEROL

REACTIONS (6)
  - Drug ineffective [None]
  - Vascular stent thrombosis [None]
  - Vascular graft [None]
  - Haemoglobin decreased [None]
  - Peripheral coldness [None]
  - Pain [None]
